FAERS Safety Report 6902254-6 (Version None)
Quarter: 2010Q3

REPORT INFORMATION
  Report Type: 
  Country: None (occurrence: None)
  Receive Date: 20100803
  Receipt Date: 20080509
  Transmission Date: 20110219
  Serious: No
  Sender: FDA-Public Use
  Company Number: US-PFIZER INC-2008030177

PATIENT
  Sex: Female
  Weight: 68 kg

DRUGS (7)
  1. LYRICA [Suspect]
     Indication: INTERVERTEBRAL DISC COMPRESSION
     Dates: start: 20050101
  2. LYRICA [Suspect]
     Indication: PAIN IN EXTREMITY
  3. TRAMADOL HYDROCHLORIDE [Concomitant]
  4. SYNTHROID [Concomitant]
  5. PAROXETINE HCL [Concomitant]
  6. ALLEGRA [Concomitant]
  7. OMEPRAZOLE [Concomitant]

REACTIONS (1)
  - STOMATITIS [None]
